FAERS Safety Report 6856778-0 (Version None)
Quarter: 2010Q3

REPORT INFORMATION
  Report Type: 
  Country: None (occurrence: None)
  Receive Date: 20100714
  Receipt Date: 20100706
  Transmission Date: 20110219
  Serious: Yes (Other)
  Sender: FDA-Public Use
  Company Number: RB-12560-2010

PATIENT
  Age: 53 Year
  Sex: Female

DRUGS (1)
  1. SUBOXONE (BECKITT BENCKISER PHARMACEUTICALS INC.) [Suspect]
     Indication: PRODUCT USED FOR UNKNOWN INDICATION

REACTIONS (2)
  - HALLUCINATION [None]
  - HEADACHE [None]
